FAERS Safety Report 16802874 (Version 2)
Quarter: 2019Q3

REPORT INFORMATION
  Report Type: Spontaneous
  Country: DE (occurrence: DE)
  Receive Date: 20190913
  Receipt Date: 20190927
  Transmission Date: 20191005
  Serious: Yes (Other)
  Sender: FDA-Public Use
  Company Number: PHHY2019DE210224

PATIENT
  Age: 75 Year
  Sex: Female
  Weight: 66 kg

DRUGS (4)
  1. METRONIDAZOL [Interacting]
     Active Substance: METRONIDAZOLE
     Indication: DIVERTICULITIS
     Dosage: UNK UNK, Q8H
     Route: 048
     Dates: start: 20190825, end: 20190830
  2. CEFUROXIME. [Suspect]
     Active Substance: CEFUROXIME
     Indication: DIVERTICULITIS
     Dosage: 500 MG, Q8H (3 X 500 MG)
     Route: 048
     Dates: start: 20190830, end: 20190902
  3. METRONIDAZOLE. [Suspect]
     Active Substance: METRONIDAZOLE
     Indication: DIVERTICULITIS
     Dosage: 400 MG, Q12H (2 X 400 MG)
     Route: 048
     Dates: start: 20190830, end: 20190902
  4. CEFUROXIME. [Interacting]
     Active Substance: CEFUROXIME
     Indication: DIVERTICULITIS
     Dosage: UNK UNK, Q8H
     Route: 065
     Dates: start: 20190825, end: 20190830

REACTIONS (4)
  - Pruritus [Recovered/Resolved]
  - Erythema [Recovered/Resolved]
  - Drug interaction [Unknown]
  - Blood pressure increased [Not Recovered/Not Resolved]

NARRATIVE: CASE EVENT DATE: 20190825
